FAERS Safety Report 24419412 (Version 2)
Quarter: 2024Q4

REPORT INFORMATION
  Report Type: Report from Study
  Country: US (occurrence: US)
  Receive Date: 20241009
  Receipt Date: 20241018
  Transmission Date: 20250115
  Serious: No
  Sender: ROCHE
  Company Number: US-ROCHE-3481935

PATIENT
  Age: 37 Year
  Sex: Female

DRUGS (11)
  1. ALTEPLASE [Suspect]
     Active Substance: ALTEPLASE
     Indication: Breast cancer female
     Dosage: DAY 1, DAY 8, EVERY 21 DAYS
     Route: 065
  2. ALTEPLASE [Suspect]
     Active Substance: ALTEPLASE
     Indication: Breast cancer female
  3. ALTEPLASE [Suspect]
     Active Substance: ALTEPLASE
     Indication: Oestrogen receptor assay positive
  4. HERCEPTIN [Suspect]
     Active Substance: TRASTUZUMAB
     Indication: Breast cancer female
     Dosage: 300MG DAY 1, 150MG DAY 8 EVERY 21 DAYS
     Route: 065
  5. HERCEPTIN [Suspect]
     Active Substance: TRASTUZUMAB
     Indication: Breast cancer female
  6. HERCEPTIN [Suspect]
     Active Substance: TRASTUZUMAB
     Indication: Oestrogen receptor assay positive
  7. BENADRYL [Concomitant]
     Active Substance: DIPHENHYDRAMINE HYDROCHLORIDE
  8. PEPCID [Concomitant]
     Active Substance: FAMOTIDINE
  9. ZOFRAN [Concomitant]
     Active Substance: ONDANSETRON HYDROCHLORIDE
  10. PACLITAXEL [Concomitant]
     Active Substance: PACLITAXEL
  11. DECADRON [Concomitant]
     Active Substance: DEXAMETHASONE

REACTIONS (2)
  - Off label use [Unknown]
  - No adverse event [Unknown]
